FAERS Safety Report 25412127 (Version 1)
Quarter: 2025Q2

REPORT INFORMATION
  Report Type: Report from Study
  Country: CA (occurrence: CA)
  Receive Date: 20250609
  Receipt Date: 20250609
  Transmission Date: 20250716
  Serious: Yes (Other)
  Sender: RANBAXY
  Company Number: CA-SUN PHARMACEUTICAL INDUSTRIES INC-2025R1-511244

PATIENT
  Age: 16 Year
  Sex: Female

DRUGS (1)
  1. SULFAMETHOXAZOLE\TRIMETHOPRIM [Suspect]
     Active Substance: SULFAMETHOXAZOLE\TRIMETHOPRIM
     Indication: Cystic fibrosis
     Route: 065

REACTIONS (3)
  - Erythema multiforme [Unknown]
  - Rash maculo-papular [Unknown]
  - Pyrexia [Unknown]
